FAERS Safety Report 4668324-0 (Version None)
Quarter: 2005Q2

REPORT INFORMATION
  Report Type: 
  Country: None (occurrence: None)
  Receive Date: 20050519
  Receipt Date: 20050510
  Transmission Date: 20051028
  Serious: Yes (Other)
  Sender: FDA-Public Use
  Company Number: US-2005-006310

PATIENT
  Age: 30 Year
  Sex: Female
  Weight: 81.6 kg

DRUGS (1)
  1. YASMIN [Suspect]
     Dosage: 1 TAB(S), 1X/DAY, ORAL
     Route: 048
     Dates: start: 20021001, end: 20041001

REACTIONS (2)
  - HEPATIC STEATOSIS [None]
  - REBOUND HYPERTENSION [None]
